FAERS Safety Report 13518754 (Version 2)
Quarter: 2017Q2

REPORT INFORMATION
  Report Type: Spontaneous
  Country: DE (occurrence: DE)
  Receive Date: 20170505
  Receipt Date: 20170522
  Transmission Date: 20170830
  Serious: Yes (Hospitalization)
  Sender: FDA-Public Use
  Company Number: DE-JNJFOC-20170428167

PATIENT
  Age: 77 Year
  Sex: Female

DRUGS (1)
  1. DARZALEX [Suspect]
     Active Substance: DARATUMUMAB
     Indication: PLASMACYTOMA
     Route: 042
     Dates: start: 20170404, end: 20170404

REACTIONS (5)
  - Feeling cold [Unknown]
  - Infusion related reaction [Unknown]
  - Blood pressure increased [Unknown]
  - Bronchospasm [Unknown]
  - Heart rate increased [Unknown]

NARRATIVE: CASE EVENT DATE: 20170404
